FAERS Safety Report 12089723 (Version 3)
Quarter: 2016Q1

REPORT INFORMATION
  Report Type: Spontaneous
  Country: JP (occurrence: JP)
  Receive Date: 20160218
  Receipt Date: 20160304
  Transmission Date: 20160526
  Serious: Yes (Hospitalization, Disabling)
  Sender: FDA-Public Use
  Company Number: JP-TAIHO ONCOLOGY INC-JPTT160098

PATIENT
  Age: 77 Year
  Sex: Female
  Weight: 37 kg

DRUGS (12)
  1. FUROSEMIDE. [Concomitant]
     Active Substance: FUROSEMIDE
     Dosage: DETAILS NOT REPORTED
     Route: 048
  2. LONSURF [Suspect]
     Active Substance: TIPIRACIL HYDROCHLORIDE\TRIFLURIDINE
     Indication: RECTAL CANCER METASTATIC
     Dosage: ON DAYS 1-5 AND 8-12 OF EACH 28-DAY CYCLE
     Route: 048
     Dates: start: 20150810, end: 20150821
  3. LONSURF [Suspect]
     Active Substance: TIPIRACIL HYDROCHLORIDE\TRIFLURIDINE
     Indication: RECTAL CANCER METASTATIC
     Dosage: A REDUCED DOSE, DETAILS NOT REPORTED
     Route: 048
     Dates: start: 20151102, end: 20160127
  4. NOVAMIN [Concomitant]
     Active Substance: PROCHLORPERAZINE MALEATE
     Indication: PROPHYLAXIS OF NAUSEA AND VOMITING
     Route: 048
     Dates: start: 20150831, end: 20150903
  5. MAGMITT [Concomitant]
     Active Substance: MAGNESIUM OXIDE
     Dosage: DETAILS NOT REPORTED
     Route: 048
  6. LANSOPRAZOLE. [Concomitant]
     Active Substance: LANSOPRAZOLE
     Dosage: DETAILS NOT REPORTED
     Route: 048
  7. MECOBALAMIN [Concomitant]
     Active Substance: METHYLCOBALAMIN
     Dosage: DETAILS NOT REPORTED
     Route: 048
  8. FLUNITRAZEPAM [Concomitant]
     Active Substance: FLUNITRAZEPAM
     Indication: SEDATION
     Dosage: 0.5-1 MG X 1/DAY
     Route: 048
     Dates: start: 20150810, end: 20160124
  9. LANDSEN [Concomitant]
     Active Substance: CLONAZEPAM
     Indication: SEDATION
     Route: 048
     Dates: start: 20150810, end: 20160127
  10. PAEONIA X SUFFRUTICOSA ROOT BARK/REHMANNIA GLUTINOSA ROOT/CORNUS OFFICINALIS FRUIT/ALISMA PLANTAGO-A [Concomitant]
     Dosage: DETAILS NOT REPORTED
     Route: 048
  11. HERBAL NOS [Concomitant]
     Active Substance: HERBALS
     Dosage: DETAILS NOT REPORTED
     Route: 048
  12. ALDACTONE A [Concomitant]
     Active Substance: SPIRONOLACTONE
     Dosage: DETAILS NOT REPORTED
     Route: 048

REACTIONS (3)
  - Facial nerve disorder [Recovering/Resolving]
  - Peripheral motor neuropathy [Recovering/Resolving]
  - Dysphagia [Recovered/Resolved]

NARRATIVE: CASE EVENT DATE: 20150901
